FAERS Safety Report 7386818-4 (Version None)
Quarter: 2011Q1

REPORT INFORMATION
  Report Type: 
  Country: None (occurrence: None)
  Receive Date: 20110331
  Receipt Date: 20110328
  Transmission Date: 20110831
  Serious: Yes (Life-Threatening)
  Sender: FDA-Public Use
  Company Number: PHHY2011GB24984

PATIENT
  Age: 57 Year
  Sex: Female
  Weight: 60 kg

DRUGS (8)
  1. VENLAFAXINE [Concomitant]
  2. OXYCONTIN [Concomitant]
  3. METHADONE [Concomitant]
  4. OMEPRAZOLE [Concomitant]
  5. CEFUROXIME [Suspect]
     Indication: KNEE OPERATION
     Dosage: UNK
     Route: 042
     Dates: start: 20101104, end: 20101211
  6. TRIFLUOPERAZINE HCL [Concomitant]
  7. PREGABALIN [Concomitant]
     Dosage: UNK
  8. ZOPICLONE [Concomitant]

REACTIONS (3)
  - INTRAVASCULAR HAEMOLYSIS [None]
  - RENAL FAILURE [None]
  - BLOOD POTASSIUM INCREASED [None]
